FAERS Safety Report 5480485-2 (Version None)
Quarter: 2007Q4

REPORT INFORMATION
  Report Type: 
  Country: None (occurrence: None)
  Receive Date: 20071009
  Receipt Date: 20071003
  Transmission Date: 20080405
  Serious: Yes (Hospitalization)
  Sender: FDA-Public Use
  Company Number: US-BRISTOL-MYERS SQUIBB COMPANY-13879713

PATIENT
  Age: 72 Year
  Sex: Female
  Weight: 79 kg

DRUGS (42)
  1. CARBOPLATIN [Suspect]
     Indication: OVARIAN CANCER
  2. PACLITAXEL [Suspect]
     Indication: OVARIAN CANCER
  3. BLINDED: ERYTHROPOIETIN [Suspect]
     Indication: PROPHYLAXIS
     Dosage: 20000 IU, 25-JUL-2007.
     Route: 058
     Dates: start: 20070702, end: 20070717
  4. BLINDED: PLACEBO [Suspect]
     Indication: PROPHYLAXIS
     Route: 058
  5. SKELAXIN [Concomitant]
     Route: 048
     Dates: start: 20041119
  6. PREVACID [Concomitant]
     Indication: GASTROOESOPHAGEAL REFLUX DISEASE
     Dosage: ALSO TAKEN FROM 02/JUN/2005 AND STOPPED
     Route: 048
     Dates: start: 20050602
  7. HYDROCHLOROTHIAZIDE [Concomitant]
     Indication: HYPERTENSION
     Dosage: ALSO TAKEN ON 17-JUL-2007
     Route: 048
     Dates: start: 20050602
  8. CLONAZEPAM [Concomitant]
     Indication: ANXIETY
     Dosage: DOSING ALSO INCLUDE 1MG:2/1 DAY,2MG:1/1 HR,1MG:3/1 DAY,3MG:1/1 DAY,1MG:2/1 DAY,2MG:1/1 DAY.
     Route: 048
     Dates: start: 20061022
  9. CARTIA XT [Concomitant]
     Indication: HYPERTENSION
     Dosage: 360MG,1/1DAY,19-NOV-04 AND STOPPED.
     Route: 048
     Dates: start: 20070717
  10. LIPITOR [Concomitant]
     Indication: BLOOD CHOLESTEROL INCREASED
     Dosage: 10MG,1/1DAY,STARTED ON 16-AUG-2005 AND STOPPED.
     Route: 048
     Dates: start: 20070717
  11. TYLENOL W/ CODEINE NO. 3 [Concomitant]
     Indication: ARTHRITIS
     Route: 048
     Dates: start: 20050124
  12. TRAMADOL HCL [Concomitant]
     Indication: PELVIC PAIN
     Dosage: 50MG,19/AUG/2006-STOPPED,15/JUL/2007-STOPPED.
     Route: 048
     Dates: start: 20070719
  13. POLYCARBOPHIL CALCIUM [Concomitant]
     Indication: CONSTIPATION
     Route: 048
     Dates: start: 20061220
  14. LEVOTHYROXINE SODIUM [Concomitant]
     Indication: HYPOTHYROIDISM
     Dosage: 20/APR/07-STOPPED;150UG,1/1DAY.
     Route: 048
     Dates: start: 20070714
  15. DOXEPIN HCL [Concomitant]
     Indication: SLEEP DISORDER
     Route: 048
     Dates: start: 20070622
  16. DOXEPIN HCL [Concomitant]
     Indication: INSOMNIA
     Route: 048
     Dates: start: 20070622
  17. DOXEPIN HCL [Concomitant]
     Indication: ANXIETY
     Route: 048
     Dates: start: 20070622
  18. MICARDIS [Concomitant]
     Indication: HYPERTENSION
     Dosage: 40MG,1/1DAY,19-JAN-07-STOPPED.
     Route: 048
     Dates: start: 20070717
  19. SLOW FE [Concomitant]
     Indication: ANAEMIA OF MALIGNANT DISEASE
     Route: 048
     Dates: start: 20070628
  20. PERCOCET [Concomitant]
     Indication: PAIN
     Dosage: 1TABQ4HRPRN,17-JUL-2007
     Route: 048
     Dates: start: 20070717
  21. BACTRIM DS [Concomitant]
     Indication: URINARY TRACT INFECTION
     Route: 048
     Dates: start: 20070626
  22. DECADRON [Concomitant]
     Indication: PREMEDICATION
     Route: 048
     Dates: start: 20070702
  23. COMPAZINE [Concomitant]
     Indication: NAUSEA
     Route: 048
     Dates: start: 20070703
  24. BENADRYL [Concomitant]
     Indication: PREMEDICATION
     Route: 042
     Dates: start: 20070703
  25. CIMETIDINE [Concomitant]
     Indication: PREMEDICATION
     Route: 042
     Dates: start: 20070703
  26. ALOXI [Concomitant]
     Indication: PREMEDICATION
     Route: 042
     Dates: start: 20070703
  27. HEPARIN [Concomitant]
  28. GENTAMICIN [Concomitant]
  29. POTASSIUM CHLORIDE [Concomitant]
  30. NYSTATIN [Concomitant]
     Indication: ANTIFUNGAL PROPHYLAXIS
     Route: 061
     Dates: start: 20070714
  31. PROCTOSOL-HC [Concomitant]
     Indication: HAEMORRHOIDS
     Route: 054
     Dates: start: 20060329
  32. VITAMIN CAP [Concomitant]
     Indication: MEDICAL DIET
     Dosage: DOSAGE FORM EQUALS TABLET
     Route: 048
     Dates: start: 20061220
  33. IMODIUM [Concomitant]
     Indication: DIARRHOEA
     Route: 048
     Dates: start: 20070119
  34. PROTONIX [Concomitant]
     Indication: GASTROOESOPHAGEAL REFLUX DISEASE
     Route: 048
     Dates: start: 20070714
  35. PROTONIX [Concomitant]
     Indication: HIATUS HERNIA
     Route: 048
     Dates: start: 20070714
  36. LANSOPRAZOLE [Concomitant]
     Indication: GASTROOESOPHAGEAL REFLUX DISEASE
     Route: 048
     Dates: start: 20070717
  37. LANSOPRAZOLE [Concomitant]
     Indication: HIATUS HERNIA
     Route: 048
     Dates: start: 20070717
  38. ZOLPIDEM TARTRATE [Concomitant]
     Indication: INSOMNIA
     Route: 048
     Dates: start: 20070717
  39. CALCIUM [Concomitant]
     Indication: HYPOCALCAEMIA
     Route: 048
     Dates: start: 20070719
  40. MAGNESIUM SULFATE [Concomitant]
     Indication: HYPOMAGNESAEMIA
     Dosage: ONE TAB EVERY 8 HOURS.
     Route: 048
     Dates: start: 20070719
  41. DILTIAZEM CD [Concomitant]
     Indication: HYPERTENSION
  42. HYDROCHLOROTHIAZIDE [Concomitant]
     Indication: HYPERTENSION
     Dates: start: 20070717

REACTIONS (1)
  - DEHYDRATION [None]
